FAERS Safety Report 18454376 (Version 3)
Quarter: 2022Q1

REPORT INFORMATION
  Report Type: Spontaneous
  Country: GB (occurrence: GB)
  Receive Date: 20201102
  Receipt Date: 20220311
  Transmission Date: 20220423
  Serious: Yes (Other)
  Sender: FDA-Public Use
  Company Number: GB-PFIZER INC-2020422611

PATIENT
  Sex: Male

DRUGS (13)
  1. AMLODIPINE BESYLATE [Suspect]
     Active Substance: AMLODIPINE BESYLATE
     Dosage: UNK
  2. AMLODIPINE BESYLATE [Suspect]
     Active Substance: AMLODIPINE BESYLATE
     Dosage: UNK
     Route: 065
  3. ATORVASTATIN CALCIUM [Suspect]
     Active Substance: ATORVASTATIN CALCIUM
     Dosage: UNK
  4. GLIMEPIRIDE [Suspect]
     Active Substance: GLIMEPIRIDE
     Dosage: UNK
  5. GLIMEPIRIDE [Suspect]
     Active Substance: GLIMEPIRIDE
     Dosage: UNK
     Route: 065
  6. INDAPAMIDE [Suspect]
     Active Substance: INDAPAMIDE
     Dosage: UNK
     Route: 065
  7. METFORMIN [Suspect]
     Active Substance: METFORMIN HYDROCHLORIDE
     Dosage: UNK
     Route: 065
  8. PIOGLITAZONE [Suspect]
     Active Substance: PIOGLITAZONE
     Dosage: UNK
     Route: 065
  9. RAMIPRIL [Suspect]
     Active Substance: RAMIPRIL
     Dosage: UNK
  10. RAMIPRIL [Suspect]
     Active Substance: RAMIPRIL
     Dosage: UNK
     Route: 065
  11. TAMSULOSIN [Suspect]
     Active Substance: TAMSULOSIN
     Dosage: UNK
     Route: 065
  12. QUETIAPINE FUMARATE [Suspect]
     Active Substance: QUETIAPINE FUMARATE
     Dosage: UNK
  13. QUETIAPINE [Suspect]
     Active Substance: QUETIAPINE
     Dosage: UNK
     Route: 065

REACTIONS (1)
  - Hallucination, visual [Unknown]
